FAERS Safety Report 24879954 (Version 1)
Quarter: 2025Q1

REPORT INFORMATION
  Report Type: Spontaneous
  Country: BR (occurrence: BR)
  Receive Date: 20250123
  Receipt Date: 20250123
  Transmission Date: 20250409
  Serious: Yes (Other)
  Sender: UCB
  Company Number: BR-UCBSA-2025002875

PATIENT
  Sex: Male

DRUGS (6)
  1. NEUPRO [Suspect]
     Active Substance: ROTIGOTINE
     Indication: Parkinson^s disease
     Dates: start: 2015
  2. NEUPRO [Suspect]
     Active Substance: ROTIGOTINE
  3. NEUPRO [Suspect]
     Active Substance: ROTIGOTINE
  4. QUETIAPINE [Suspect]
     Active Substance: QUETIAPINE
     Indication: Product used for unknown indication
  5. BENSERAZIDE\LEVODOPA [Concomitant]
     Active Substance: BENSERAZIDE\LEVODOPA
     Indication: Product used for unknown indication
     Dosage: UNK, 2X/DAY (BID) (BREAKFAST AT 10.30 AM, AND IN THE AFTERNOON AT 2 PM TO 6 PM)
     Dates: start: 2015
  6. LEVOCETIRIZINE;MONTELUKAST [Concomitant]
     Indication: Muscle atrophy

REACTIONS (5)
  - Hallucination [Not Recovered/Not Resolved]
  - Shoulder operation [Unknown]
  - Bladder disorder [Unknown]
  - Dermatitis contact [Unknown]
  - Adverse drug reaction [Unknown]

NARRATIVE: CASE EVENT DATE: 20240101
